FAERS Safety Report 4521880-5 (Version None)
Quarter: 2004Q4

REPORT INFORMATION
  Report Type: 
  Country: None (occurrence: None)
  Receive Date: 20041207
  Receipt Date: 20041122
  Transmission Date: 20050328
  Serious: Yes (Other)
  Sender: FDA-Public Use
  Company Number: M2004.1547

PATIENT
  Age: 33 Year
  Sex: Male
  Weight: 87.0906 kg

DRUGS (4)
  1. PEG-INTRON [Suspect]
     Indication: HEPATITIS C
     Dosage: 150MCG Q WK SUBCUTANEOU
     Route: 058
     Dates: start: 20040714
  2. RIBAVIRIN [Suspect]
     Indication: HEPATITIS C
     Dosage: 1200 MG QD ORAL
     Route: 048
     Dates: start: 20040714
  3. PAXIL [Concomitant]
  4. TRILEPTAL TABLETS [Concomitant]

REACTIONS (2)
  - DEHYDRATION [None]
  - VOMITING [None]
